FAERS Safety Report 13162899 (Version 2)
Quarter: 2019Q4

REPORT INFORMATION
  Report Type: Spontaneous
  Country: US (occurrence: US)
  Receive Date: 20170130
  Receipt Date: 20191021
  Transmission Date: 20200122
  Serious: Yes (Other)
  Sender: FDA-Public Use
  Company Number: US-PFIZER INC-2017040052

PATIENT
  Age: 52 Year
  Sex: Male

DRUGS (9)
  1. VIAGRA [Suspect]
     Active Substance: SILDENAFIL CITRATE
     Dosage: 50 MG, WEEKLY
     Route: 048
     Dates: start: 20080815, end: 20080914
  2. VIAGRA [Suspect]
     Active Substance: SILDENAFIL CITRATE
     Dosage: 100 MG, WEEKLY
     Route: 048
     Dates: start: 20120811, end: 20130321
  3. CIALIS [Suspect]
     Active Substance: TADALAFIL
     Dosage: 20 MG, WEEKLY (1/2 TABLET)
     Route: 048
     Dates: start: 20080815, end: 20081022
  4. CIALIS [Suspect]
     Active Substance: TADALAFIL
     Dosage: 20 MG, WEEKLY
     Route: 048
     Dates: start: 20130321, end: 20130324
  5. CIALIS [Suspect]
     Active Substance: TADALAFIL
     Dosage: 20 MG, WEEKLY
     Route: 048
     Dates: start: 20130325, end: 20130406
  6. CIALIS [Suspect]
     Active Substance: TADALAFIL
     Dosage: 20 MG, WEEKLY
     Route: 048
     Dates: start: 20130407, end: 20160302
  7. VIAGRA [Suspect]
     Active Substance: SILDENAFIL CITRATE
     Indication: ERECTILE DYSFUNCTION
     Dosage: UNK, REGULARLY
     Route: 048
     Dates: start: 200808, end: 201308
  8. VIAGRA [Suspect]
     Active Substance: SILDENAFIL CITRATE
     Dosage: 100 MG, WEEKLY
     Route: 048
     Dates: start: 20091204, end: 20100103
  9. CIALIS [Suspect]
     Active Substance: TADALAFIL
     Indication: ERECTILE DYSFUNCTION
     Dosage: UNK, REGULARLY
     Route: 048
     Dates: start: 200808, end: 201602

REACTIONS (1)
  - Malignant melanoma [Unknown]

NARRATIVE: CASE EVENT DATE: 20130724
